FAERS Safety Report 5952597-8 (Version None)
Quarter: 2008Q4

REPORT INFORMATION
  Report Type: 
  Country: None (occurrence: None)
  Receive Date: 20081031
  Receipt Date: 20071119
  Transmission Date: 20090506
  Serious: Yes (Hospitalization)
  Sender: FDA-Public Use
  Company Number: US021778

PATIENT
  Age: 27 Year
  Sex: Female

DRUGS (4)
  1. PROVIGIL [Suspect]
     Indication: NARCOLEPSY
     Dosage: 100 MG QD ORAL
     Route: 048
     Dates: start: 20070701
  2. PROVIGIL [Suspect]
     Indication: NARCOLEPSY
     Dosage: 200 MG QD ORAL
     Route: 048
     Dates: end: 20071101
  3. XYREM [Suspect]
     Indication: CATAPLEXY
     Dates: start: 20071001
  4. BIRTH CONTROL PILL [Concomitant]

REACTIONS (4)
  - HALLUCINATION [None]
  - MANIA [None]
  - MENSTRUATION IRREGULAR [None]
  - PARANOIA [None]
